FAERS Safety Report 4882760-9 (Version None)
Quarter: 2005Q4

REPORT INFORMATION
  Report Type: 
  Country: None (occurrence: None)
  Receive Date: 20051201
  Receipt Date: 20050916
  Transmission Date: 20060501
  Serious: No
  Sender: FDA-Public Use
  Company Number: 2005PV002195

PATIENT
  Age: 48 Year
  Sex: Female
  Weight: 83.4619 kg

DRUGS (8)
  1. BYETTA [Suspect]
     Indication: DIABETES MELLITUS NON-INSULIN-DEPENDENT
     Dosage: 10 MCG; QAM; SC; SEE IMAGE
     Route: 058
     Dates: start: 20050831, end: 20050913
  2. BYETTA [Suspect]
     Indication: DIABETES MELLITUS NON-INSULIN-DEPENDENT
     Dosage: 10 MCG; QAM; SC; SEE IMAGE
     Route: 058
     Dates: start: 20050914
  3. BYETTA [Suspect]
     Indication: DIABETES MELLITUS NON-INSULIN-DEPENDENT
     Dosage: 10 MCG; QAM; SC; SEE IMAGE
     Route: 058
     Dates: start: 20050914
  4. AVANDAMET [Concomitant]
  5. LANTUS [Concomitant]
  6. HUMALOG [Concomitant]
  7. HYDROCORTISONE [Concomitant]
  8. SYNTHROID [Concomitant]

REACTIONS (6)
  - BLOOD GLUCOSE DECREASED [None]
  - ERUCTATION [None]
  - FLATULENCE [None]
  - HAEMATEMESIS [None]
  - NAUSEA [None]
  - VOMITING [None]
